FAERS Safety Report 4743486-5 (Version None)
Quarter: 2005Q3

REPORT INFORMATION
  Report Type: 
  Country: None (occurrence: None)
  Receive Date: 20050809
  Receipt Date: 20050802
  Transmission Date: 20060218
  Serious: Yes (Hospitalization)
  Sender: FDA-Public Use
  Company Number: CN-2005-015352

PATIENT
  Age: 42 Year
  Sex: Female
  Weight: 45 kg

DRUGS (1)
  1. ULTRAVIST 300 [Suspect]
     Indication: COMPUTERISED TOMOGRAM
     Dosage: 100 ML, 1 DOSE, INTRAVENOUS
     Route: 042
     Dates: start: 20050730, end: 20050730

REACTIONS (4)
  - CARDIAC ARREST [None]
  - COMA [None]
  - DYSPNOEA [None]
  - NAUSEA [None]
